FAERS Safety Report 12242378 (Version 1)
Quarter: 2016Q2

REPORT INFORMATION
  Report Type: Spontaneous
  Country: US (occurrence: US)
  Receive Date: 20160406
  Receipt Date: 20160406
  Transmission Date: 20160815
  Serious: No
  Sender: FDA-Public Use
  Company Number: 07-002471 WARNER CHILCOTT

PATIENT
  Age: 49 Year
  Sex: Female
  Weight: 51.82 kg

DRUGS (16)
  1. HORMONES NOS [Concomitant]
     Active Substance: UNSPECIFIED INGREDIENT
  2. FEMRING [Suspect]
     Active Substance: ESTRADIOL ACETATE
     Route: 067
     Dates: start: 20080319, end: 20080327
  3. FEMRING [Suspect]
     Active Substance: ESTRADIOL ACETATE
     Route: 067
     Dates: start: 2009, end: 2009
  4. FEMRING [Suspect]
     Active Substance: ESTRADIOL ACETATE
     Indication: ATROPHIC VULVOVAGINITIS
     Route: 067
  5. PROGESTERONE. [Concomitant]
     Active Substance: PROGESTERONE
  6. FEMRING [Suspect]
     Active Substance: ESTRADIOL ACETATE
     Route: 067
     Dates: start: 2009
  7. NUTRITIONAL SUPPLEMENT [Concomitant]
     Active Substance: DIETARY SUPPLEMENT
  8. ESTROGEN NOS [Concomitant]
     Active Substance: ESTROGENS
  9. FEMRING [Suspect]
     Active Substance: ESTRADIOL ACETATE
     Route: 067
     Dates: start: 20090407, end: 2009
  10. FEMRING [Suspect]
     Active Substance: ESTRADIOL ACETATE
     Route: 067
     Dates: start: 20071111
  11. PROGESTERONE. [Concomitant]
     Active Substance: PROGESTERONE
  12. VIVELLE [Concomitant]
     Active Substance: ESTRADIOL
  13. PROMETRIUM [Concomitant]
     Active Substance: PROGESTERONE
  14. HRT PATCH [Concomitant]
  15. CLIMARA [Concomitant]
     Active Substance: ESTRADIOL
     Dates: start: 200803, end: 200803
  16. ARMOUR THYROID [Concomitant]
     Active Substance: THYROID, PORCINE

REACTIONS (7)
  - Drug administration error [Not Recovered/Not Resolved]
  - Metrorrhagia [Not Recovered/Not Resolved]
  - Abdominal discomfort [Not Recovered/Not Resolved]
  - Drug ineffective [Not Recovered/Not Resolved]
  - Burning sensation [Not Recovered/Not Resolved]
  - Blood oestrogen decreased [Not Recovered/Not Resolved]
  - Vaginal discharge [Not Recovered/Not Resolved]

NARRATIVE: CASE EVENT DATE: 200712
